FAERS Safety Report 9293293 (Version 1)
Quarter: 2013Q2

REPORT INFORMATION
  Report Type: Spontaneous
  Country: US (occurrence: US)
  Receive Date: 20130516
  Receipt Date: 20130516
  Transmission Date: 20140414
  Serious: No
  Sender: FDA-Public Use
  Company Number: US-009507513-1305USA009137

PATIENT
  Sex: Female

DRUGS (5)
  1. FORMOTEROL FUMARATE [Suspect]
     Indication: CHRONIC OBSTRUCTIVE PULMONARY DISEASE
     Dosage: 1 DF, BID
     Route: 055
  2. COMBIVENT [Concomitant]
     Dosage: UNK
  3. ADVAIR [Concomitant]
     Dosage: UNK
  4. SPIRIVA [Concomitant]
     Dosage: UNK
  5. FLONASE [Concomitant]
     Dosage: UNK

REACTIONS (1)
  - Drug ineffective [Unknown]
